FAERS Safety Report 21206323 (Version 2)
Quarter: 2022Q3

REPORT INFORMATION
  Report Type: Report from Study
  Country: HU (occurrence: HU)
  Receive Date: 20220812
  Receipt Date: 20220902
  Transmission Date: 20221027
  Serious: Yes (Death, Hospitalization)
  Sender: FDA-Public Use
  Company Number: HU-ABBVIE-22K-076-4492989-00

PATIENT
  Sex: Male

DRUGS (3)
  1. CARBIDOPA\LEVODOPA [Suspect]
     Active Substance: CARBIDOPA\LEVODOPA
     Indication: Parkinson^s disease
     Dosage: MORNING DOSE: 4.1 ML; CONTINUOS DOSE: 2.7 ML/HOUR; EXTRA DOSE: 1.5 ML
     Route: 050
     Dates: start: 20150703, end: 20220728
  2. CARBIDOPA\LEVODOPA [Suspect]
     Active Substance: CARBIDOPA\LEVODOPA
  3. QUETIAPINE FUMARATE [Suspect]
     Active Substance: QUETIAPINE FUMARATE
     Indication: Confusional state
     Route: 048
     Dates: start: 20220720, end: 20220724

REACTIONS (4)
  - Pneumonia [Fatal]
  - COVID-19 [Recovered/Resolved]
  - Confusional state [Not Recovered/Not Resolved]
  - Syncope [Recovered/Resolved]

NARRATIVE: CASE EVENT DATE: 20220701
